FAERS Safety Report 6027316-X (Version None)
Quarter: 2009Q1

REPORT INFORMATION
  Report Type: 
  Country: None (occurrence: None)
  Receive Date: 20090105
  Receipt Date: 20081229
  Transmission Date: 20090719
  Serious: Yes (Hospitalization)
  Sender: FDA-Public Use
  Company Number: B0494292A

PATIENT
  Age: 22 Year
  Sex: Male

DRUGS (2)
  1. VALTREX [Suspect]
     Indication: KAPOSI'S VARICELLIFORM ERUPTION
     Dosage: 500MG TWICE PER DAY
     Route: 048
     Dates: start: 20071102, end: 20071102
  2. ZOVIRAX [Suspect]
     Indication: DRUG USE FOR UNKNOWN INDICATION
     Route: 042

REACTIONS (3)
  - ALTERED STATE OF CONSCIOUSNESS [None]
  - PORIOMANIA [None]
  - RESTLESSNESS [None]
